FAERS Safety Report 8581134-7 (Version None)
Quarter: 2012Q3

REPORT INFORMATION
  Report Type: 
  Country: None (occurrence: None)
  Receive Date: 20120727
  Receipt Date: 20120716
  Transmission Date: 20120928
  Serious: Yes (Hospitalization, Other)
  Sender: FDA-Public Use
  Company Number: JPI-P-021982

PATIENT
  Age: 31 Year
  Sex: Female
  Weight: 55.3388 kg

DRUGS (13)
  1. UNSPECIFIED STIMULANTS [Concomitant]
  2. XYREM [Suspect]
     Indication: SOMNOLENCE
     Dosage: SEE IMAGE
     Route: 048
     Dates: start: 20120701
  3. XYREM [Suspect]
     Indication: CATAPLEXY
     Dosage: SEE IMAGE
     Route: 048
     Dates: start: 20120701
  4. XYREM [Suspect]
     Indication: SOMNOLENCE
     Dosage: SEE IMAGE
     Route: 048
     Dates: start: 20120628, end: 20120701
  5. XYREM [Suspect]
     Indication: CATAPLEXY
     Dosage: SEE IMAGE
     Route: 048
     Dates: start: 20120628, end: 20120701
  6. XYREM [Suspect]
     Indication: SOMNOLENCE
     Dosage: SEE IMAGE
     Route: 048
     Dates: start: 20120606, end: 20120601
  7. XYREM [Suspect]
     Indication: CATAPLEXY
     Dosage: SEE IMAGE
     Route: 048
     Dates: start: 20120606, end: 20120601
  8. XYREM [Suspect]
     Indication: SOMNOLENCE
     Dosage: SEE IMAGE
     Route: 048
     Dates: start: 20120601, end: 20120601
  9. XYREM [Suspect]
     Indication: CATAPLEXY
     Dosage: SEE IMAGE
     Route: 048
     Dates: start: 20120601, end: 20120601
  10. XYREM [Suspect]
     Indication: SOMNOLENCE
     Dosage: SEE IMAGE
     Route: 048
     Dates: start: 20120101, end: 20120701
  11. XYREM [Suspect]
     Indication: CATAPLEXY
     Dosage: SEE IMAGE
     Route: 048
     Dates: start: 20120101, end: 20120701
  12. XYREM [Suspect]
     Indication: SOMNOLENCE
     Dosage: SEE IMAGE
     Route: 048
     Dates: start: 20120701, end: 20120701
  13. XYREM [Suspect]
     Indication: CATAPLEXY
     Dosage: SEE IMAGE
     Route: 048
     Dates: start: 20120701, end: 20120701

REACTIONS (17)
  - FEELING ABNORMAL [None]
  - DYSPHAGIA [None]
  - MEMORY IMPAIRMENT [None]
  - NAUSEA [None]
  - MALAISE [None]
  - SOMNOLENCE [None]
  - RETCHING [None]
  - DEHYDRATION [None]
  - DIZZINESS [None]
  - INITIAL INSOMNIA [None]
  - THERAPEUTIC RESPONSE DECREASED [None]
  - WEIGHT DECREASED [None]
  - HYPOPHAGIA [None]
  - DECREASED APPETITE [None]
  - MALNUTRITION [None]
  - ANXIETY [None]
  - DRUG DOSE OMISSION [None]
